FAERS Safety Report 19952925 (Version 1)
Quarter: 2021Q4

REPORT INFORMATION
  Report Type: Spontaneous
  Country: US (occurrence: US)
  Receive Date: 20211013
  Receipt Date: 20211013
  Transmission Date: 20220303
  Serious: Yes (Life-Threatening)
  Sender: FDA-Public Use
  Company Number: None

PATIENT
  Age: 27 Year
  Sex: Female
  Weight: 49.5 kg

DRUGS (3)
  1. AMOXICILLIN\CLAVULANATE POTASSIUM [Suspect]
     Active Substance: AMOXICILLIN\CLAVULANATE POTASSIUM
     Indication: Dental caries
     Dosage: ?          QUANTITY:30 TABLET(S);
     Route: 048
     Dates: start: 20210929, end: 20211001
  2. AMOXICILLIN\CLAVULANATE POTASSIUM [Suspect]
     Active Substance: AMOXICILLIN\CLAVULANATE POTASSIUM
     Indication: Infection
  3. METRODANAZOLE [Concomitant]

REACTIONS (7)
  - Dysentery [None]
  - Mucous stools [None]
  - Colitis [None]
  - Gastrointestinal mucosal exfoliation [None]
  - Diarrhoea [None]
  - Abnormal loss of weight [None]
  - Product physical consistency issue [None]
